FAERS Safety Report 7745244-6 (Version None)
Quarter: 2011Q3

REPORT INFORMATION
  Report Type: 
  Country: None (occurrence: None)
  Receive Date: 20110913
  Receipt Date: 20110905
  Transmission Date: 20111222
  Serious: Yes (Other)
  Sender: FDA-Public Use
  Company Number: FR-JNJFOC-20110902528

PATIENT
  Age: 32 Year
  Sex: Female

DRUGS (3)
  1. HYDROCORTISONE [Concomitant]
     Indication: PREMEDICATION
  2. HYDROCORTISONE [Concomitant]
  3. REMICADE [Suspect]
     Indication: CROHN'S DISEASE
     Route: 042
     Dates: start: 20100101

REACTIONS (1)
  - TACHYCARDIA [None]
